FAERS Safety Report 4933984-3 (Version None)
Quarter: 2006Q1

REPORT INFORMATION
  Report Type: 
  Country: None (occurrence: None)
  Receive Date: 20060303
  Receipt Date: 20060215
  Transmission Date: 20060701
  Serious: No
  Sender: FDA-Public Use
  Company Number: DSA_60685_2006

PATIENT
  Age: 23 Year
  Sex: Male
  Weight: 68.0396 kg

DRUGS (4)
  1. DIASTAT [Suspect]
     Indication: CONVULSION
     Dosage: DF RC
     Route: 054
  2. DEPAKOTE [Concomitant]
  3. LAMICTAL [Concomitant]
  4. LEXAPRIL [Concomitant]

REACTIONS (4)
  - CIRCUMSTANCE OR INFORMATION CAPABLE OF LEADING TO MEDICATION ERROR [None]
  - CONVULSION [None]
  - HYPOVENTILATION [None]
  - LOSS OF CONSCIOUSNESS [None]
